FAERS Safety Report 13036900 (Version 1)
Quarter: 2016Q4

REPORT INFORMATION
  Report Type: Spontaneous
  Country: DK (occurrence: DK)
  Receive Date: 20161216
  Receipt Date: 20161216
  Transmission Date: 20170207
  Serious: Yes (Hospitalization, Disabling)
  Sender: FDA-Public Use
  Company Number: PHHY2016DK171037

PATIENT
  Age: 23 Year
  Sex: Female

DRUGS (2)
  1. TRIMINETTA [Suspect]
     Active Substance: ETHINYL ESTRADIOL\LEVONORGESTREL
     Indication: ORAL CONTRACEPTION
     Route: 048
     Dates: start: 2005, end: 20140326
  2. TRIMINETTA [Suspect]
     Active Substance: ETHINYL ESTRADIOL\LEVONORGESTREL
     Indication: DYSMENORRHOEA

REACTIONS (6)
  - Fatigue [Not Recovered/Not Resolved]
  - Intracranial pressure increased [Unknown]
  - Headache [Not Recovered/Not Resolved]
  - Intracranial venous sinus thrombosis [Recovered/Resolved with Sequelae]
  - Dural arteriovenous fistula [Unknown]
  - Chronic paroxysmal hemicrania [Unknown]

NARRATIVE: CASE EVENT DATE: 20140324
